FAERS Safety Report 8492466 (Version 4)
Quarter: 2012Q4

REPORT INFORMATION
  Report Type: 
  Country: RU (occurrence: RU)
  Receive Date: 20120403
  Receipt Date: 20121031
  Transmission Date: 20130627
  Serious: Yes (Other)
  Sender: FDA-Public Use
  Company Number: RU-AMGEN-RUSSP2011038247

PATIENT
  Age: 25 Year
  Sex: Female
  Weight: 44 kg

DRUGS (5)
  1. NPLATE [Suspect]
     Indication: IDIOPATHIC THROMBOCYTOPENIC PURPURA
     Dosage: 1 mg/kg, qwk
     Route: 058
     Dates: start: 201102, end: 201112
  2. NPLATE [Suspect]
     Dosage: UNK
  3. SORBIFER                           /00023503/ [Concomitant]
     Indication: ANAEMIA
     Dosage: UNK
     Dates: start: 20110201, end: 20110301
  4. PREDNISOLONE [Concomitant]
     Indication: IDIOPATHIC THROMBOCYTOPENIC PURPURA
     Dosage: 40 mg, qd
     Route: 048
     Dates: start: 20120303
  5. PREDNISOLONE [Concomitant]
     Dosage: UNK
     Dates: start: 1989, end: 201202

REACTIONS (2)
  - Uterine haematoma [Unknown]
  - Drug ineffective [Unknown]
